FAERS Safety Report 8990163 (Version 1)
Quarter: 2012Q4

REPORT INFORMATION
  Report Type: 
  Country: US (occurrence: US)
  Receive Date: 20121228
  Receipt Date: 20121228
  Transmission Date: 20130627
  Serious: No
  Sender: FDA-Public Use
  Company Number: US-PFIZER INC-2012330290

PATIENT
  Age: 49 Year
  Sex: Male
  Weight: 126.98 kg

DRUGS (3)
  1. ADVIL LIQUIGEL [Suspect]
     Indication: BACK PAIN
     Dosage: 200 mg, 2x/day
     Route: 048
     Dates: start: 2012, end: 201206
  2. ADVIL LIQUIGEL [Suspect]
     Indication: NECK PAIN
  3. ADVIL LIQUIGEL [Suspect]
     Indication: PAIN IN ELBOW

REACTIONS (1)
  - Drug ineffective [Unknown]
